FAERS Safety Report 4559407-4 (Version None)
Quarter: 2005Q1

REPORT INFORMATION
  Report Type: 
  Country: None (occurrence: None)
  Receive Date: 20050120
  Receipt Date: 20050120
  Transmission Date: 20050727
  Serious: Yes (Other)
  Sender: FDA-Public Use
  Company Number: None

PATIENT
  Age: 74 Year
  Sex: Male

DRUGS (6)
  1. GALANTAMINE [Suspect]
     Indication: MEMORY IMPAIRMENT
     Dosage: 4 MG BID
  2. PAXIL [Concomitant]
  3. TRAZODONE HCL [Concomitant]
  4. QUETIAPINE [Concomitant]
  5. XANAX [Concomitant]
  6. RITALIN [Concomitant]

REACTIONS (1)
  - RASH [None]
